FAERS Safety Report 8807267 (Version 1)
Quarter: 2012Q4

REPORT INFORMATION
  Report Type: 
  Country: US (occurrence: US)
  Receive Date: 20120925
  Receipt Date: 20120925
  Transmission Date: 20130627
  Serious: Yes (Other)
  Sender: FDA-Public Use
  Company Number: CHPA2012US019974

PATIENT
  Age: 57 Year
  Sex: Male

DRUGS (2)
  1. EXCEDRIN EXTRA STRENGTH [Suspect]
     Indication: PAIN
     Dosage: 2 DF, Q4H PRN
     Route: 048
     Dates: end: 2012
  2. VANQUISH [Concomitant]
     Dosage: UNK, UNK
     Dates: start: 2012

REACTIONS (1)
  - Meniscus injury [Recovered/Resolved]
